FAERS Safety Report 8487591-9 (Version None)
Quarter: 2012Q3

REPORT INFORMATION
  Report Type: 
  Country: None (occurrence: None)
  Receive Date: 20120705
  Receipt Date: 20120622
  Transmission Date: 20120928
  Serious: Yes (Hospitalization)
  Sender: FDA-Public Use
  Company Number: IT-VERTEX PHARMACEUTICALS INC.-000000000000000996

PATIENT
  Sex: Male
  Weight: 63 kg

DRUGS (5)
  1. RIBAVIRIN [Concomitant]
     Indication: HEPATITIS C
     Dosage: DOSAGE FORM: TABLET
     Route: 048
     Dates: start: 20120608
  2. PEGINTERFERON ALFA-2A [Concomitant]
     Indication: HEPATITIS C
     Dosage: DOSAGE FORM: INJECTION
     Route: 058
     Dates: start: 20120608
  3. TELAPREVIR [Suspect]
     Indication: HEPATITIS C
     Dosage: DOSAGE FORM: TABLET
     Route: 048
     Dates: start: 20120608
  4. ATAZANAVIR [Concomitant]
     Indication: HIV INFECTION
  5. TENOFOVIR DISOPROXIL FUMARATE [Concomitant]
     Indication: HIV INFECTION
     Dosage: DOSAGE FORM: UNKNOWN

REACTIONS (2)
  - HYPERBILIRUBINAEMIA [None]
  - HYPOPHOSPHATAEMIA [None]
